FAERS Safety Report 6098687-3 (Version None)
Quarter: 2009Q1

REPORT INFORMATION
  Report Type: 
  Country: None (occurrence: None)
  Receive Date: 20090302
  Receipt Date: 20090224
  Transmission Date: 20090719
  Serious: Yes (Hospitalization)
  Sender: FDA-Public Use
  Company Number: FR-ASTRAZENECA-2009CG00437

PATIENT
  Age: 74 Year
  Sex: Female

DRUGS (2)
  1. ATACAND [Suspect]
     Route: 048
     Dates: start: 20080801, end: 20081230
  2. PROTELOS [Suspect]
     Route: 048
     Dates: start: 20081101, end: 20081224

REACTIONS (3)
  - EOSINOPHILIA [None]
  - PRURITUS [None]
  - RASH GENERALISED [None]
